FAERS Safety Report 23654026 (Version 1)
Quarter: 2024Q1

REPORT INFORMATION
  Report Type: Spontaneous
  Country: US (occurrence: None)
  Receive Date: 20240319
  Receipt Date: 20240319
  Transmission Date: 20240410
  Serious: Yes (Disabling)
  Sender: FDA-Public Use
  Company Number: None

PATIENT
  Age: 76 Year
  Sex: Male
  Weight: 80.1 kg

DRUGS (1)
  1. INGREZZA [Suspect]
     Active Substance: VALBENAZINE
     Indication: Tardive dyskinesia
     Dosage: FREQUENCY : DAILY;?
     Route: 048
     Dates: start: 20220801, end: 20221031

REACTIONS (6)
  - Asthenia [None]
  - Pain [None]
  - Weight decreased [None]
  - Loss of personal independence in daily activities [None]
  - Dysstasia [None]
  - Pain in extremity [None]

NARRATIVE: CASE EVENT DATE: 20220801
